FAERS Safety Report 4678551-4 (Version None)
Quarter: 2005Q2

REPORT INFORMATION
  Report Type: 
  Country: None (occurrence: None)
  Receive Date: 20050531
  Receipt Date: 20050531
  Transmission Date: 20051028
  Serious: Yes (Other)
  Sender: FDA-Public Use
  Company Number: None

PATIENT

DRUGS (1)
  1. SYNTHROID [Suspect]
     Dosage: 0.112 MG DAILY

REACTIONS (3)
  - HEADACHE [None]
  - SINUS DISORDER [None]
  - SWELLING [None]
